FAERS Safety Report 12477515 (Version 2)
Quarter: 2020Q2

REPORT INFORMATION
  Report Type: Spontaneous
  Country: US (occurrence: US)
  Receive Date: 20160617
  Receipt Date: 20200508
  Transmission Date: 20200713
  Serious: Yes (Death, Other)
  Sender: FDA-Public Use
  Company Number: US-ASTRAZENECA-2016SE65439

PATIENT
  Sex: Male

DRUGS (4)
  1. ACTOS [Concomitant]
     Active Substance: PIOGLITAZONE HYDROCHLORIDE
  2. LOT OF DIABETES MEDICATIONS [Concomitant]
  3. INSULIN [Concomitant]
     Active Substance: INSULIN NOS
     Dosage: A COUPLE OF TIMES DAILY
  4. CRESTOR [Suspect]
     Active Substance: ROSUVASTATIN CALCIUM
     Dosage: 20MG OR 40MG DAILY
     Route: 048

REACTIONS (3)
  - Metastases to pancreas [Unknown]
  - Metastases to liver [Unknown]
  - Malignant neoplasm progression [Fatal]
